APPROVED DRUG PRODUCT: ENDURONYL FORTE
Active Ingredient: DESERPIDINE; METHYCLOTHIAZIDE
Strength: 0.5MG;5MG
Dosage Form/Route: TABLET;ORAL
Application: N012775 | Product #002
Applicant: ABBOTT LABORATORIES PHARMACEUTICAL PRODUCTS DIV
Approved: Approved Prior to Jan 1, 1982 | RLD: No | RS: No | Type: DISCN